FAERS Safety Report 23517416 (Version 2)
Quarter: 2024Q1

REPORT INFORMATION
  Report Type: Report from Study
  Country: US (occurrence: US)
  Receive Date: 20240213
  Receipt Date: 20240319
  Transmission Date: 20240410
  Serious: Yes (Death, Other)
  Sender: FDA-Public Use
  Company Number: US-GILEAD-2024-0661877

PATIENT
  Age: 78 Year
  Sex: Female

DRUGS (1)
  1. AZTREONAM LYSINE [Suspect]
     Active Substance: AZTREONAM LYSINE
     Indication: Product used for unknown indication
     Dosage: 75 MG, TID [28 DAYS ON AND 28 DAYS OFF]
     Route: 055
     Dates: start: 20220706, end: 20240103

REACTIONS (1)
  - Death [Fatal]

NARRATIVE: CASE EVENT DATE: 20240208
